FAERS Safety Report 5490510-0 (Version None)
Quarter: 2007Q4

REPORT INFORMATION
  Report Type: 
  Country: None (occurrence: None)
  Receive Date: 20071017
  Receipt Date: 20071017
  Transmission Date: 20080405
  Serious: Yes (Hospitalization)
  Sender: FDA-Public Use
  Company Number: None

PATIENT
  Age: 62 Year
  Sex: Female
  Weight: 88.905 kg

DRUGS (2)
  1. EMSAM [Suspect]
     Indication: DEPRESSION
     Dosage: 6MG DAILY TRANSDERMAL
     Route: 062
     Dates: start: 20071003, end: 20071012
  2. PROVIGIL [Suspect]
     Indication: DEPRESSION
     Dosage: 400MG DAILY PO
     Route: 048
     Dates: start: 20070918, end: 20071012

REACTIONS (2)
  - DRUG INTERACTION [None]
  - HYPERTENSIVE CRISIS [None]
